FAERS Safety Report 4763654-6 (Version None)
Quarter: 2005Q3

REPORT INFORMATION
  Report Type: 
  Country: None (occurrence: None)
  Receive Date: 20050901
  Receipt Date: 20050603
  Transmission Date: 20060218
  Serious: No
  Sender: FDA-Public Use
  Company Number: 200510330BWH

PATIENT
  Age: 81 Year
  Sex: Male

DRUGS (7)
  1. LEVITRA [Suspect]
     Dosage: SEE IMAGE
     Route: 048
     Dates: start: 20040706, end: 20041201
  2. LEVITRA [Suspect]
     Dosage: SEE IMAGE
     Route: 048
     Dates: start: 20050201, end: 20050224
  3. LEVITRA [Suspect]
     Dosage: SEE IMAGE
     Route: 048
     Dates: start: 20050101
  4. LEVITRA [Suspect]
  5. PREVACID [Concomitant]
  6. FLAXSEED [Concomitant]
  7. VIAGRA [Concomitant]

REACTIONS (2)
  - DRUG EFFECT DECREASED [None]
  - DRUG INEFFECTIVE [None]
